FAERS Safety Report 15403588 (Version 3)
Quarter: 2018Q4

REPORT INFORMATION
  Report Type: Spontaneous
  Country: US (occurrence: US)
  Receive Date: 20180919
  Receipt Date: 20181218
  Transmission Date: 20190204
  Serious: Yes (Other)
  Sender: FDA-Public Use
  Company Number: US-009507513-1809USA001919

PATIENT
  Sex: Female
  Weight: 78.91 kg

DRUGS (30)
  1. DIETARY SUPPLEMENT (UNSPECIFIED) [Concomitant]
     Active Substance: DIETARY SUPPLEMENT
  2. AMANTADINE HYDROCHLORIDE. [Concomitant]
     Active Substance: AMANTADINE HYDROCHLORIDE
  3. HYDROCHLOROT [Concomitant]
     Active Substance: HYDROCHLOROTHIAZIDE
  4. SINEMET [Suspect]
     Active Substance: CARBIDOPA\LEVODOPA
     Dosage: 6X/DAY (6 TIMES A DAY)
     Route: 048
  5. AMANTADINE. [Suspect]
     Active Substance: AMANTADINE HYDROCHLORIDE
     Dosage: 137 MG, 1X/DAY AT BEDTIME
     Dates: start: 20180807, end: 2018
  6. AMANTADINE. [Suspect]
     Active Substance: AMANTADINE HYDROCHLORIDE
     Indication: DYSKINESIA
     Dosage: 274 MG, 1X/DAY AT BEDTIME
     Route: 048
     Dates: start: 201808, end: 20180805
  7. AMANTADINE. [Suspect]
     Active Substance: AMANTADINE HYDROCHLORIDE
     Dosage: 137 MG, 2X/DAY
     Route: 048
     Dates: start: 20180806, end: 20180806
  8. POTASSIUM (UNSPECIFIED) [Concomitant]
     Active Substance: POTASSIUM
     Dosage: ONE TABLET PER DAY
  9. ERGOCALCIFEROL. [Concomitant]
     Active Substance: ERGOCALCIFEROL
     Dosage: ^50.000^ TWICE WEEKLY
  10. DOXYCYCLINE HYCLATE. [Concomitant]
     Active Substance: DOXYCYCLINE HYCLATE
  11. FLUOROURACIL. [Concomitant]
     Active Substance: FLUOROURACIL
  12. NOVO-METOPROL [Concomitant]
     Active Substance: METOPROLOL TARTRATE
  13. SINEMET [Suspect]
     Active Substance: CARBIDOPA\LEVODOPA
     Dosage: AT NIGHT
     Route: 048
  14. SINEMET CR [Suspect]
     Active Substance: CARBIDOPA\LEVODOPA
     Dosage: AT BED TIME
     Route: 048
  15. AMANTADINE. [Suspect]
     Active Substance: AMANTADINE HYDROCHLORIDE
     Dosage: 137 MG, 2X/DAY
     Route: 048
     Dates: start: 2018, end: 2018
  16. CITALOPRAM [Concomitant]
     Active Substance: CITALOPRAM HYDROBROMIDE
     Dosage: 40 MG, QD
  17. GENTEAL (HYPROMELLOSE) [Concomitant]
  18. AMANTADINE. [Suspect]
     Active Substance: AMANTADINE HYDROCHLORIDE
     Indication: PARKINSON^S DISEASE
     Dosage: 137 MG, AT 22:00 DAILY
     Route: 048
     Dates: start: 20180725, end: 201808
  19. LORAZEPAM. [Concomitant]
     Active Substance: LORAZEPAM
     Dosage: 0.5 MG, AT NIGHT
  20. NITROFURANTOIN. [Concomitant]
     Active Substance: NITROFURANTOIN
  21. HYDROCHLOROTHIAZIDE. [Concomitant]
     Active Substance: HYDROCHLOROTHIAZIDE
     Dosage: 12.5 MG ONCE DAILY
  22. MELOXICAM. [Concomitant]
     Active Substance: MELOXICAM
  23. VITAMIN D [Concomitant]
     Active Substance: CHOLECALCIFEROL
  24. LOSARTAN. [Concomitant]
     Active Substance: LOSARTAN
     Dosage: TWICE DAILY
  25. ALPRAZOLAM. [Concomitant]
     Active Substance: ALPRAZOLAM
     Dosage: 0.5 DF, UNK
  26. MELATONIN [Concomitant]
     Active Substance: MELATONIN
     Dosage: UNK
     Dates: end: 201807
  27. AMANTADINE. [Suspect]
     Active Substance: AMANTADINE HYDROCHLORIDE
     Dosage: 274 MG, 1X/DAY AT BEDTIME
     Route: 048
     Dates: start: 2018
  28. TOPROL XL [Concomitant]
     Active Substance: METOPROLOL SUCCINATE
     Dosage: ONCE DAILY
  29. CEFDINIR. [Concomitant]
     Active Substance: CEFDINIR
  30. DUREZOL [Concomitant]
     Active Substance: DIFLUPREDNATE

REACTIONS (20)
  - Headache [Recovered/Resolved]
  - Muscle tightness [Recovered/Resolved]
  - Dry mouth [Not Recovered/Not Resolved]
  - Feeling abnormal [Unknown]
  - Adverse drug reaction [Unknown]
  - Chills [Not Recovered/Not Resolved]
  - Feeling hot [Unknown]
  - Hyperhidrosis [Unknown]
  - Heart rate increased [Recovered/Resolved]
  - Dyskinesia [Recovered/Resolved]
  - Muscle spasms [Unknown]
  - Dizziness [Unknown]
  - Musculoskeletal stiffness [Unknown]
  - Panic attack [Unknown]
  - Parkinson^s disease [Unknown]
  - Anxiety [Recovered/Resolved]
  - Therapeutic response shortened [Unknown]
  - Dystonia [Recovered/Resolved]
  - Peripheral swelling [Not Recovered/Not Resolved]
  - Balance disorder [Unknown]

NARRATIVE: CASE EVENT DATE: 2018
